FAERS Safety Report 4502241-1 (Version None)
Quarter: 2004Q4

REPORT INFORMATION
  Report Type: 
  Country: None (occurrence: None)
  Receive Date: 20041109
  Receipt Date: 20041026
  Transmission Date: 20050328
  Serious: Yes (Hospitalization)
  Sender: FDA-Public Use
  Company Number: EWC041041186

PATIENT
  Age: 76 Year
  Sex: Female
  Weight: 81 kg

DRUGS (3)
  1. FORTEO [Suspect]
     Indication: OSTEOPOROSIS
     Dates: start: 20040401
  2. LEVODOPA W/BENSERAZIDE/ [Concomitant]
  3. ATENOLOL [Concomitant]

REACTIONS (3)
  - FALL [None]
  - LUMBAR VERTEBRAL FRACTURE [None]
  - MOVEMENT DISORDER [None]
